FAERS Safety Report 6237843-8 (Version None)
Quarter: 2009Q2

REPORT INFORMATION
  Report Type: 
  Country: None (occurrence: None)
  Receive Date: 20090617
  Receipt Date: 20090603
  Transmission Date: 20091009
  Serious: Yes (Hospitalization)
  Sender: FDA-Public Use
  Company Number: 8047583

PATIENT
  Age: 55 Year
  Sex: Female
  Weight: 80 kg

DRUGS (9)
  1. CDP870 [Suspect]
     Indication: RHEUMATOID ARTHRITIS
     Dosage: 200 MG 1/2W SC
     Route: 058
     Dates: start: 20050601, end: 20060517
  2. CDP870 [Suspect]
     Indication: RHEUMATOID ARTHRITIS
     Dosage: 400 MG 1/2W SC
     Route: 058
     Dates: start: 20060531, end: 20071122
  3. CPD870 [Suspect]
     Indication: RHEUMATOID ARTHRITIS
     Dosage: 200 MG 1/2W SC
     Route: 058
     Dates: start: 20071212
  4. METHOTREXATE [Concomitant]
  5. VOLTAREN [Concomitant]
  6. NEULIN [Concomitant]
  7. ALBUTEROL [Concomitant]
  8. OMEPRAZOLE [Concomitant]
  9. SERETIDE [Concomitant]

REACTIONS (7)
  - ANAEMIA [None]
  - ARTHROPATHY [None]
  - CONDITION AGGRAVATED [None]
  - GASTROOESOPHAGEAL REFLUX DISEASE [None]
  - PROCEDURAL SITE REACTION [None]
  - RHEUMATOID ARTHRITIS [None]
  - WOUND INFECTION [None]
